FAERS Safety Report 9410855 (Version 1)
Quarter: 2013Q3

REPORT INFORMATION
  Report Type: Spontaneous
  Country: US (occurrence: US)
  Receive Date: 20130719
  Receipt Date: 20130719
  Transmission Date: 20140515
  Serious: Yes (Hospitalization)
  Sender: FDA-Public Use
  Company Number: US-009507513-1307USA005073

PATIENT
  Age: 61 Year
  Sex: Female

DRUGS (7)
  1. LISINOPRIL [Suspect]
  2. HYDROXYCHLOROQUINE SULFATE [Concomitant]
  3. AZATHIOPRINE [Suspect]
  4. LIDOCAINE [Concomitant]
  5. BENZOCAINE [Concomitant]
  6. FENTANYL [Concomitant]
  7. MIDAZOLAM [Concomitant]

REACTIONS (1)
  - Respiratory tract oedema [Unknown]
